FAERS Safety Report 6794595-0 (Version None)
Quarter: 2010Q2

REPORT INFORMATION
  Report Type: 
  Country: None (occurrence: None)
  Receive Date: 20100625
  Receipt Date: 20100617
  Transmission Date: 20101027
  Serious: Yes (Hospitalization, Disabling, Other)
  Sender: FDA-Public Use
  Company Number: US-JNJFOC-20100606195

PATIENT
  Sex: Male
  Weight: 140.62 kg

DRUGS (3)
  1. DURAGESIC-100 [Suspect]
     Indication: BACK PAIN
     Route: 062
  2. DURAGESIC-100 [Suspect]
     Route: 062
  3. DURAGESIC-100 [Suspect]
     Route: 062

REACTIONS (10)
  - BLINDNESS UNILATERAL [None]
  - CONSTIPATION [None]
  - DRUG DOSE OMISSION [None]
  - JOINT INJURY [None]
  - MALIGNANT MELANOMA [None]
  - PAIN [None]
  - PRODUCT ADHESION ISSUE [None]
  - SCIATICA [None]
  - TRANSIENT ISCHAEMIC ATTACK [None]
  - WRONG TECHNIQUE IN DRUG USAGE PROCESS [None]
